FAERS Safety Report 13876696 (Version 1)
Quarter: 2017Q3

REPORT INFORMATION
  Report Type: Spontaneous
  Country: US (occurrence: US)
  Receive Date: 20170817
  Receipt Date: 20170817
  Transmission Date: 20171127
  Serious: No
  Sender: FDA-Public Use
  Company Number: US-009507513-1708USA002453

PATIENT
  Age: 35 Year
  Sex: Female

DRUGS (19)
  1. PREDNISONE. [Suspect]
     Active Substance: PREDNISONE
     Dosage: 50 MG, QD (PRN), ALSO REPORTED AS, 120 MG /MONTH
  2. RANITIDINE. [Suspect]
     Active Substance: RANITIDINE
     Dosage: 150 MG, BID
  3. HYDROCORTISONE. [Suspect]
     Active Substance: HYDROCORTISONE
  4. DEXAMETHASONE. [Suspect]
     Active Substance: DEXAMETHASONE
  5. METHYLPREDNISOLONE. [Suspect]
     Active Substance: METHYLPREDNISOLONE
     Route: 042
  6. HYDROXYZINE [Suspect]
     Active Substance: HYDROXYZINE HYDROCHLORIDE
     Dosage: 50 MG, BID
  7. DIPHENHYDRAMINE. [Suspect]
     Active Substance: DIPHENHYDRAMINE
     Dosage: 25-50 MG, PRN
  8. ONDANSETRON [Suspect]
     Active Substance: ONDANSETRON
  9. CETIRIZINE HYDROCHLORIDE. [Suspect]
     Active Substance: CETIRIZINE HYDROCHLORIDE
     Dosage: 10 MG, BID
  10. FENTANYL. [Suspect]
     Active Substance: FENTANYL
  11. PEGINTRON [Suspect]
     Active Substance: PEGINTERFERON ALFA-2B
     Dosage: 1.2-2.4 MILLION UNITS, TIW
     Route: 058
  12. PEGINTRON [Suspect]
     Active Substance: PEGINTERFERON ALFA-2B
     Dosage: 600,000 UNITS, TIW
  13. CEFAZOLIN [Suspect]
     Active Substance: CEFAZOLIN
  14. BUPIVACAINE. [Suspect]
     Active Substance: BUPIVACAINE
     Dosage: 0.1% 3-12 ML/H
  15. PROPOFOL. [Suspect]
     Active Substance: PROPOFOL
  16. PEGINTRON [Suspect]
     Active Substance: PEGINTERFERON ALFA-2B
     Dosage: 600,000 UNITS, TIW
     Dates: start: 201009
  17. FAMOTIDINE. [Suspect]
     Active Substance: FAMOTIDINE
     Route: 042
  18. SUCCINYLCHOLINE CHLORIDE. [Suspect]
     Active Substance: SUCCINYLCHOLINE CHLORIDE
  19. MONTELUKAST SODIUM. [Suspect]
     Active Substance: MONTELUKAST SODIUM
     Dosage: 10 MG, QD

REACTIONS (1)
  - Exposure during pregnancy [Recovered/Resolved]
